FAERS Safety Report 22975619 (Version 2)
Quarter: 2023Q4

REPORT INFORMATION
  Report Type: Spontaneous
  Country: FR (occurrence: FR)
  Receive Date: 20230925
  Receipt Date: 20231004
  Transmission Date: 20240109
  Serious: Yes (Other)
  Sender: FDA-Public Use
  Company Number: FR-INCYTE CORPORATION-2023IN009426

PATIENT

DRUGS (4)
  1. TAFASITAMAB [Suspect]
     Active Substance: TAFASITAMAB
     Indication: Diffuse large B-cell lymphoma
     Dosage: 800 MILLIGRAM (C1D1)
     Route: 065
     Dates: start: 20230213, end: 20230707
  2. TAFASITAMAB [Suspect]
     Active Substance: TAFASITAMAB
     Dosage: 800 MILLIGRAM (C1D1)
     Route: 065
     Dates: start: 20230213, end: 20230707
  3. TAFASITAMAB [Suspect]
     Active Substance: TAFASITAMAB
     Dosage: 800 MILLIGRAM (C1D1)
     Route: 065
     Dates: start: 20230213, end: 20230707
  4. TAFASITAMAB [Suspect]
     Active Substance: TAFASITAMAB
     Dosage: 800 MILLIGRAM (C1D1)
     Route: 065
     Dates: start: 20230213, end: 20230707

REACTIONS (4)
  - Metastases to bone [Recovering/Resolving]
  - Diffuse large B-cell lymphoma [Not Recovered/Not Resolved]
  - Drug resistance [Recovering/Resolving]
  - Disease progression [Not Recovered/Not Resolved]
